FAERS Safety Report 24441914 (Version 2)
Quarter: 2024Q4

REPORT INFORMATION
  Report Type: Report from Study
  Country: US (occurrence: US)
  Receive Date: 20241016
  Receipt Date: 20241017
  Transmission Date: 20250115
  Serious: No
  Sender: ROCHE
  Company Number: US-ROCHE-3520413

PATIENT
  Age: 89 Year
  Sex: Male

DRUGS (2)
  1. HEMLIBRA [Suspect]
     Active Substance: EMICIZUMAB-KXWH
     Indication: Acquired haemophilia
     Dosage: INJECT 330MG (2.2ML) SUBCUTANEOUSLY EVERY 4 WEEK(S) DRAW 0.8ML FROM 2 VIALS OF 60MG AND DRAW 1.4ML F
     Route: 058
  2. HEMLIBRA [Suspect]
     Active Substance: EMICIZUMAB-KXWH
     Indication: Chronic lymphocytic leukaemia
     Dosage: INJECT 330MG (2.2ML) SUBCUTANEOUSLY EVERY 4 WEEK(S) DRAW 0.8ML FROM 2 VIALS OF 60MG AND DRAW 1.4ML F
     Route: 058

REACTIONS (2)
  - Nasopharyngitis [Unknown]
  - Off label use [Unknown]
